FAERS Safety Report 6815752-0 (Version None)
Quarter: 2010Q3

REPORT INFORMATION
  Report Type: 
  Country: None (occurrence: None)
  Receive Date: 20100703
  Receipt Date: 20100301
  Transmission Date: 20110219
  Serious: Yes (Other)
  Sender: FDA-Public Use
  Company Number: US-ASTRAZENECA-2009UW12270

PATIENT
  Age: 37 Year
  Sex: Female

DRUGS (7)
  1. SEROQUEL [Suspect]
     Route: 048
     Dates: start: 19990419
  2. HYDROCODONE BITARTRATE AND ACETAMINOPHEN [Concomitant]
     Dosage: 5-500 MG
     Dates: start: 19990410
  3. CLONAZEPAM [Concomitant]
     Dates: start: 19990419
  4. ZOLOFT [Concomitant]
     Dates: start: 19990419
  5. AMBIEN [Concomitant]
     Dates: start: 19990419
  6. NEURONTIN [Concomitant]
     Dates: start: 19990525
  7. SUMATRIPTAN SUCCINATE (IMITREX) [Concomitant]

REACTIONS (2)
  - DIABETIC NEUROPATHY [None]
  - TYPE 2 DIABETES MELLITUS [None]
